FAERS Safety Report 8151459-8 (Version None)
Quarter: 2012Q1

REPORT INFORMATION
  Report Type: 
  Country: None (occurrence: None)
  Receive Date: 20120220
  Receipt Date: 20120209
  Transmission Date: 20120608
  Serious: Yes (Other)
  Sender: FDA-Public Use
  Company Number: FR-ASTRAZENECA-2012SE08973

PATIENT
  Age: 45 Year
  Sex: Female

DRUGS (4)
  1. TERCIAN [Concomitant]
     Route: 048
  2. TRANXENE [Concomitant]
     Route: 048
  3. QUETIAPINE FUMARATE [Suspect]
     Indication: MAJOR DEPRESSION
     Dosage: DOSE PROGRESSIVELY INCREASED TO 300 MG PER DAY
     Route: 048
     Dates: start: 20120111, end: 20120209
  4. PAROXETINE HYDROCHLORIDE [Concomitant]
     Route: 048

REACTIONS (3)
  - BLINDNESS UNILATERAL [None]
  - DRUG PRESCRIBING ERROR [None]
  - VISION BLURRED [None]
